FAERS Safety Report 22053093 (Version 2)
Quarter: 2023Q1

REPORT INFORMATION
  Report Type: Spontaneous
  Country: JP (occurrence: JP)
  Receive Date: 20230302
  Receipt Date: 20230315
  Transmission Date: 20230418
  Serious: Yes (Hospitalization, Other)
  Sender: FDA-Public Use
  Company Number: JP-GILEAD-2023-0618354

PATIENT
  Age: 88 Year
  Sex: Male
  Weight: 54 kg

DRUGS (15)
  1. VEKLURY [Suspect]
     Active Substance: REMDESIVIR
     Indication: COVID-19
     Dosage: 200 MG
     Route: 042
     Dates: start: 20221226, end: 20221226
  2. VEKLURY [Suspect]
     Active Substance: REMDESIVIR
     Dosage: 100 MG
     Route: 042
     Dates: start: 20221227, end: 20221228
  3. NICORANDIL [Concomitant]
     Active Substance: NICORANDIL
     Indication: Angina pectoris
     Dosage: 15 MG
     Route: 048
     Dates: start: 20190319
  4. DIMETHICONE [Concomitant]
     Active Substance: DIMETHICONE
     Indication: Dyspepsia
     Dosage: 80 MG
     Route: 048
     Dates: start: 20190821
  5. LIDOCAINE [Concomitant]
     Active Substance: LIDOCAINE
     Indication: Pain management
     Dosage: 18 MG
     Route: 062
     Dates: start: 20180524
  6. AMLODIPINE BESYLATE\IRBESARTAN [Concomitant]
     Active Substance: AMLODIPINE BESYLATE\IRBESARTAN
     Indication: Hypertension
     Dosage: UNK
     Route: 048
     Dates: start: 20181124
  7. METOCLOPRAMIDE [Concomitant]
     Active Substance: METOCLOPRAMIDE
     Indication: Nausea
     Dosage: 10 MG
     Route: 048
     Dates: start: 20220924
  8. LINZESS [Concomitant]
     Active Substance: LINACLOTIDE
     Indication: Constipation
     Dosage: 0.25 MG
     Route: 048
     Dates: start: 20200825
  9. RABEPRAZOLE SODIUM [Concomitant]
     Active Substance: RABEPRAZOLE SODIUM
     Indication: Prophylaxis against gastrointestinal ulcer
     Dosage: 10 MG
     Route: 048
     Dates: start: 20180524
  10. ASPIRIN [Concomitant]
     Active Substance: ASPIRIN
     Indication: Angina pectoris
     Dosage: 100 MG
     Route: 048
     Dates: start: 20180524
  11. FEBUXOSTAT [Concomitant]
     Active Substance: FEBUXOSTAT
     Indication: Hyperuricaemia
     Dosage: 10 MG
     Route: 048
     Dates: start: 20180524
  12. EPOETIN ALFA BS [Concomitant]
     Active Substance: ERYTHROPOIETIN
     Indication: Nephrogenic anaemia
     Dosage: 2 ML
     Route: 042
     Dates: start: 20190226
  13. ROXADUSTAT [Concomitant]
     Active Substance: ROXADUSTAT
     Indication: Nephrogenic anaemia
     Dosage: 50 MG
     Route: 048
     Dates: start: 20220512
  14. MAXACALCITOL [Concomitant]
     Active Substance: MAXACALCITOL
     Indication: Hyperparathyroidism secondary
     Dosage: 2.5 UG
     Route: 042
     Dates: start: 20211210
  15. AMINO ACIDS, SOURCE UNSPECIFIED [Concomitant]
     Active Substance: AMINO ACIDS, SOURCE UNSPECIFIED
     Indication: Nutritional supplementation
     Dosage: 200 ML
     Route: 042
     Dates: start: 20221203

REACTIONS (1)
  - Cholangitis [Recovered/Resolved]

NARRATIVE: CASE EVENT DATE: 20230103
